FAERS Safety Report 10058618 (Version 1)
Quarter: 2014Q2

REPORT INFORMATION
  Report Type: Spontaneous
  Country: FR (occurrence: FR)
  Receive Date: 20140404
  Receipt Date: 20140404
  Transmission Date: 20141212
  Serious: Yes (Hospitalization)
  Sender: FDA-Public Use
  Company Number: FR-JNJFOC-20140319517

PATIENT
  Age: 68 Year
  Sex: Male

DRUGS (8)
  1. XARELTO [Suspect]
     Indication: CEREBROVASCULAR ACCIDENT PROPHYLAXIS
     Route: 048
     Dates: start: 201308, end: 20140303
  2. XARELTO [Suspect]
     Indication: ATRIAL FIBRILLATION
     Route: 048
     Dates: start: 201308, end: 20140303
  3. BISOPROLOL [Concomitant]
     Route: 065
  4. BIPRETERAX [Concomitant]
     Route: 065
  5. DIGOXINE [Concomitant]
     Route: 065
  6. ESOMEPRAZOLE [Concomitant]
     Route: 065
  7. DIGOXIN [Concomitant]
     Route: 065
  8. TAHOR [Concomitant]
     Route: 065

REACTIONS (1)
  - Segmented hyalinising vasculitis [Recovered/Resolved]
